FAERS Safety Report 5982953-3 (Version None)
Quarter: 2008Q4

REPORT INFORMATION
  Report Type: 
  Country: None (occurrence: None)
  Receive Date: 20081125
  Receipt Date: 20080806
  Transmission Date: 20090506
  Serious: Yes (Hospitalization)
  Sender: FDA-Public Use
  Company Number: 2008MP000123

PATIENT
  Age: 41 Year
  Sex: Male
  Weight: 96.1626 kg

DRUGS (2)
  1. GLIADEL [Suspect]
     Indication: GLIOBLASTOMA MULTIFORME
     Dosage: 23.1 MG;X1;ICER
     Dates: start: 20080101
  2. DENDRITIC CELL VACCINE [Suspect]
     Indication: GLIOBLASTOMA MULTIFORME
     Dosage: X1;INTRADERMAL
     Route: 023
     Dates: start: 20080731, end: 20080731

REACTIONS (3)
  - DYSPNOEA [None]
  - PYREXIA [None]
  - RASH MACULAR [None]
